FAERS Safety Report 13909042 (Version 2)
Quarter: 2017Q4

REPORT INFORMATION
  Report Type: Spontaneous
  Country: US (occurrence: US)
  Receive Date: 20170828
  Receipt Date: 20171023
  Transmission Date: 20180320
  Serious: No
  Sender: FDA-Public Use
  Company Number: US-B.I. PHARMACEUTICALS,INC./RIDGEFIELD-2017-BI-046254

PATIENT
  Age: 50 Year
  Sex: Female

DRUGS (2)
  1. ATROVENT [Suspect]
     Active Substance: IPRATROPIUM BROMIDE
     Indication: ASTHMA
     Dosage: AS NEEDED;  FORM STRENGTH: 17 MCG; FORMULATION: INHALATION AEROSOL
     Route: 055
     Dates: start: 2004
  2. LEVOTHYROXINE. [Concomitant]
     Active Substance: LEVOTHYROXINE
     Indication: HYPOTHYROIDISM
     Dosage: ONCE DAILY;  FORMULATION: TABLET;
     Route: 048

REACTIONS (4)
  - Off label use [Unknown]
  - Product taste abnormal [Unknown]
  - Product odour abnormal [Unknown]
  - Asthma [Recovered/Resolved]

NARRATIVE: CASE EVENT DATE: 2004
